FAERS Safety Report 5373515-X (Version None)
Quarter: 2007Q2

REPORT INFORMATION
  Report Type: 
  Country: None (occurrence: None)
  Receive Date: 20070628
  Receipt Date: 20070622
  Transmission Date: 20071010
  Serious: Yes (Hospitalization)
  Sender: FDA-Public Use
  Company Number: A0660267A

PATIENT
  Age: 64 Year
  Sex: Female

DRUGS (3)
  1. AVANDIA [Suspect]
     Dosage: 8MG PER DAY
     Route: 048
     Dates: start: 20030901, end: 20070501
  2. TOPROL-XL [Concomitant]
  3. ALTACE [Concomitant]

REACTIONS (9)
  - ARRHYTHMIA [None]
  - ASTHENIA [None]
  - FALL [None]
  - HAEMORRHAGE [None]
  - LOCAL SWELLING [None]
  - MYOCARDIAL INFARCTION [None]
  - OEDEMA PERIPHERAL [None]
  - SWELLING FACE [None]
  - UPPER LIMB FRACTURE [None]
